FAERS Safety Report 4821605-X (Version None)
Quarter: 2005Q4

REPORT INFORMATION
  Report Type: 
  Country: None (occurrence: None)
  Receive Date: 20051103
  Receipt Date: 20051103
  Transmission Date: 20060501
  Serious: Yes (Life-Threatening)
  Sender: FDA-Public Use
  Company Number: None

PATIENT
  Age: 92 Year
  Sex: Male
  Weight: 66.2252 kg

DRUGS (6)
  1. MORPHINE [Suspect]
     Indication: PAIN
     Dosage: 6 MG IM/IV
     Route: 030
     Dates: start: 20050706
  2. MORPHINE [Suspect]
     Indication: PAIN
     Dosage: 8 MG IM /IV
     Route: 042
     Dates: start: 20050707
  3. LORAZEPAM [Concomitant]
  4. WARFARIN [Concomitant]
  5. LORTAB [Concomitant]
  6. SERTRALINE HCL [Concomitant]

REACTIONS (2)
  - HYPOTENSION [None]
  - LOSS OF CONSCIOUSNESS [None]
